FAERS Safety Report 18822402 (Version 2)
Quarter: 2021Q1

REPORT INFORMATION
  Report Type: Report from Study
  Country: BR (occurrence: BR)
  Receive Date: 20210202
  Receipt Date: 20210202
  Transmission Date: 20210419
  Serious: Yes (Other)
  Sender: FDA-Public Use
  Company Number: NVSC2021BR022819

PATIENT
  Age: 57 Year
  Sex: Male

DRUGS (5)
  1. METHOTREXATE. [Concomitant]
     Active Substance: METHOTREXATE
     Indication: PRODUCT USED FOR UNKNOWN INDICATION
     Dosage: 10 MG
     Route: 065
  2. METICORTEN [Concomitant]
     Active Substance: PREDNISONE
     Indication: PRODUCT USED FOR UNKNOWN INDICATION
     Route: 065
  3. COSENTYX [Concomitant]
     Active Substance: SECUKINUMAB
     Indication: PSORIATIC ARTHROPATHY
     Dosage: 300 MG
     Route: 065
     Dates: start: 20180515
  4. METHOTREXATE. [Concomitant]
     Active Substance: METHOTREXATE
     Dosage: 0.4 MG, QW (ON TUESDAYS)
     Route: 065
  5. CATAFLAM [Suspect]
     Active Substance: DICLOFENAC POTASSIUM
     Indication: ARTHRALGIA
     Dosage: UNK
     Route: 065
     Dates: start: 201812

REACTIONS (20)
  - Malaise [Unknown]
  - Gait inability [Recovering/Resolving]
  - Weight decreased [Recovered/Resolved]
  - Diabetes mellitus [Unknown]
  - Thirst [Unknown]
  - Arthritis [Not Recovered/Not Resolved]
  - Cataract [Recovered/Resolved]
  - Blindness [Unknown]
  - Joint stiffness [Not Recovered/Not Resolved]
  - Joint dislocation [Not Recovered/Not Resolved]
  - Arthralgia [Recovered/Resolved]
  - Joint effusion [Recovered/Resolved]
  - Muscular weakness [Unknown]
  - Blood triglycerides increased [Unknown]
  - Decreased appetite [Unknown]
  - Pain [Not Recovered/Not Resolved]
  - Ligament rupture [Not Recovered/Not Resolved]
  - Arthralgia [Recovering/Resolving]
  - Dry mouth [Unknown]
  - Osteoarthritis [Unknown]

NARRATIVE: CASE EVENT DATE: 201812
